FAERS Safety Report 21113380 (Version 1)
Quarter: 2022Q3

REPORT INFORMATION
  Report Type: Spontaneous
  Country: FR (occurrence: FR)
  Receive Date: 20220721
  Receipt Date: 20220721
  Transmission Date: 20221026
  Serious: Yes (Life-Threatening, Other)
  Sender: FDA-Public Use
  Company Number: None

PATIENT
  Age: 79 Year
  Sex: Female
  Weight: 97 kg

DRUGS (9)
  1. KETOPROFEN [Interacting]
     Active Substance: KETOPROFEN
     Indication: Back pain
     Dosage: 1 DOSAGE FORM PRN, AS NECESSARY
     Route: 048
  2. ACECLOFENAC [Interacting]
     Active Substance: ACECLOFENAC
     Indication: Back pain
     Dosage: 200 MILLIGRAM, PRN AS NECESSARY
     Route: 048
  3. GLIMEPIRIDE [Concomitant]
     Active Substance: GLIMEPIRIDE
     Dosage: UNK
     Route: 048
  4. METFORMIN HYDROCHLORIDE [Concomitant]
     Active Substance: METFORMIN HYDROCHLORIDE
     Dosage: 3 GRAM, QD
     Route: 048
  5. JANUVIA [Concomitant]
     Active Substance: SITAGLIPTIN PHOSPHATE
     Dosage: 100 MILLIGRAM, QD
     Route: 048
  6. ACETAMINOPHEN [Concomitant]
     Active Substance: ACETAMINOPHEN
     Dosage: 1 DOSAGE FORM, PRN AS NECESSARY
     Route: 048
  7. NEBIVOLOL [Concomitant]
     Active Substance: NEBIVOLOL
     Dosage: 1.25 MILLIGRAM, QD
     Route: 048
  8. DESLORATADINE [Concomitant]
     Active Substance: DESLORATADINE
     Dosage: 1 DOSAGE FORM, QD
     Route: 048
  9. ATORVASTATIN [Concomitant]
     Active Substance: ATORVASTATIN
     Dosage: 10 MILLIGRAM, QD
     Route: 048

REACTIONS (3)
  - Duodenal ulcer perforation [Recovering/Resolving]
  - Shock haemorrhagic [Recovered/Resolved]
  - Drug interaction [Recovered/Resolved]

NARRATIVE: CASE EVENT DATE: 20220614
